FAERS Safety Report 20247714 (Version 1)
Quarter: 2021Q4

REPORT INFORMATION
  Report Type: Spontaneous
  Country: US (occurrence: US)
  Receive Date: 20211229
  Receipt Date: 20211229
  Transmission Date: 20220303
  Serious: No
  Sender: FDA-Public Use
  Company Number: US-SA-SAC20211225000510

PATIENT
  Sex: Female

DRUGS (15)
  1. KEVZARA [Suspect]
     Active Substance: SARILUMAB
     Indication: Arthralgia
     Dosage: 200 MG, QOW
     Route: 058
  2. ALPRAZOLAM [Concomitant]
     Active Substance: ALPRAZOLAM
  3. BREO ELLIPTA [Concomitant]
     Active Substance: FLUTICASONE FUROATE\VILANTEROL TRIFENATATE
     Dosage: 200-25 MC
  4. CELECOXIB [Concomitant]
     Active Substance: CELECOXIB
  5. CLONIDINE [Concomitant]
     Active Substance: CLONIDINE
  6. EPINEPHRINE [Concomitant]
     Active Substance: EPINEPHRINE
  7. ESZOPICLONE [Concomitant]
     Active Substance: ESZOPICLONE
  8. HYDROXYUREA [Concomitant]
     Active Substance: HYDROXYUREA
  9. LEFLUNOMIDE [Concomitant]
     Active Substance: LEFLUNOMIDE
  10. METOPROLOL [Concomitant]
     Active Substance: METOPROLOL
  11. PANTOPRAZOLE [Concomitant]
     Active Substance: PANTOPRAZOLE
  12. PREDNISONE [Concomitant]
     Active Substance: PREDNISONE
  13. TOPIRAMATE [Concomitant]
     Active Substance: TOPIRAMATE
  14. VENLAFAXINE [Concomitant]
     Active Substance: VENLAFAXINE HYDROCHLORIDE
  15. XARELTO [Concomitant]
     Active Substance: RIVAROXABAN
     Dosage: 20MG

REACTIONS (1)
  - Headache [Unknown]
